FAERS Safety Report 5245186-4 (Version None)
Quarter: 2007Q1

REPORT INFORMATION
  Report Type: 
  Country: None (occurrence: None)
  Receive Date: 20070223
  Receipt Date: 20070212
  Transmission Date: 20070707
  Serious: Yes (Hospitalization)
  Sender: FDA-Public Use
  Company Number: US-ROCHE-480543

PATIENT
  Age: 3 Year
  Sex: Male
  Weight: 17.7 kg

DRUGS (2)
  1. TAMIFLU [Suspect]
     Indication: INFLUENZA
     Route: 048
     Dates: start: 20061219, end: 20061223
  2. AMOXICILLIN [Suspect]
     Indication: SINUSITIS
     Route: 048
     Dates: start: 20061229, end: 20070104

REACTIONS (2)
  - SERUM SICKNESS [None]
  - SINUSITIS [None]
